FAERS Safety Report 15633594 (Version 2)
Quarter: 2020Q2

REPORT INFORMATION
  Report Type: Report from Study
  Country: US (occurrence: US)
  Receive Date: 20181119
  Receipt Date: 20200604
  Transmission Date: 20200713
  Serious: Yes (Hospitalization, Other)
  Sender: FDA-Public Use
  Company Number: US-SA-2018SA311631

PATIENT

DRUGS (1)
  1. INSULIN GLARGINE [Suspect]
     Active Substance: INSULIN GLARGINE
     Indication: TYPE 2 DIABETES MELLITUS
     Dosage: 60 IU, BID
     Route: 058

REACTIONS (6)
  - Myocardial infarction [Recovering/Resolving]
  - Wheelchair user [Recovering/Resolving]
  - Chest pain [Recovering/Resolving]
  - Wound [Recovered/Resolved]
  - Walking aid user [Recovering/Resolving]
  - Off label use [Unknown]
